FAERS Safety Report 6261125-1 (Version None)
Quarter: 2009Q3

REPORT INFORMATION
  Report Type: 
  Country: None (occurrence: None)
  Receive Date: 20090709
  Receipt Date: 20081216
  Transmission Date: 20100115
  Serious: No
  Sender: FDA-Public Use
  Company Number: US-KINGPHARMUSA00001-K200801439

PATIENT
  Age: 45 Year
  Sex: Female

DRUGS (4)
  1. LEVOXYL [Suspect]
     Indication: HYPOTHYROIDISM
     Dosage: 25 MCG, QD
     Route: 048
     Dates: start: 20081001
  2. LEVOXYL [Suspect]
     Dosage: 50 MCG, QD
     Route: 048
  3. LEVOXYL [Suspect]
     Dosage: 100 MCG, QD
     Route: 048
     Dates: end: 20081213
  4. CYTOMEL [Concomitant]
     Indication: HYPOTHYROIDISM
     Dosage: 25 MG, QD
     Route: 048
     Dates: start: 20080701

REACTIONS (1)
  - URTICARIA [None]
